FAERS Safety Report 14419869 (Version 1)
Quarter: 2018Q1

REPORT INFORMATION
  Report Type: Spontaneous
  Country: US (occurrence: US)
  Receive Date: 20180121
  Receipt Date: 20180121
  Transmission Date: 20180509
  Serious: No
  Sender: FDA-Public Use
  Company Number: None

PATIENT
  Age: 36 Year
  Sex: Female
  Weight: 54 kg

DRUGS (6)
  1. PRENATAL DAILY WOMANS VITAMINS [Concomitant]
  2. AMNEAL (GENERIC FOR NORCO 10-325) WHITE OVAL AND IP110 [Suspect]
     Active Substance: ACETAMINOPHEN\HYDROCODONE BITARTRATE
     Indication: PAIN
     Dosage: ?          QUANTITY:1 TABLET(S);?
     Route: 048
     Dates: start: 20180109
  3. XANAX [Concomitant]
     Active Substance: ALPRAZOLAM
  4. ADDERALL [Concomitant]
     Active Substance: AMPHETAMINE ASPARTATE\AMPHETAMINE SULFATE\DEXTROAMPHETAMINE SACCHARATE\DEXTROAMPHETAMINE SULFATE
  5. BIOTIN [Concomitant]
     Active Substance: BIOTIN
  6. NORCO [Concomitant]
     Active Substance: ACETAMINOPHEN\HYDROCODONE BITARTRATE

REACTIONS (6)
  - Pain [None]
  - Drug ineffective [None]
  - Nervousness [None]
  - Confusional state [None]
  - Product substitution issue [None]
  - Drug abuser [None]

NARRATIVE: CASE EVENT DATE: 20180109
